FAERS Safety Report 16989185 (Version 1)
Quarter: 2019Q4

REPORT INFORMATION
  Report Type: Spontaneous
  Country: US (occurrence: US)
  Receive Date: 20191101
  Receipt Date: 20191101
  Transmission Date: 20200122
  Serious: Yes (Death)
  Sender: FDA-Public Use
  Company Number: None

PATIENT
  Age: 61 Year
  Sex: Male
  Weight: 85.95 kg

DRUGS (1)
  1. AFATINIB DIMALEATE [Suspect]
     Active Substance: AFATINIB DIMALEATE
     Indication: ADENOCARCINOMA
     Route: 048
     Dates: start: 20190601, end: 20191026

REACTIONS (4)
  - Pleural effusion [None]
  - Chronic obstructive pulmonary disease [None]
  - Acute respiratory failure [None]
  - Pneumonia bacterial [None]

NARRATIVE: CASE EVENT DATE: 20191026
